FAERS Safety Report 24075246 (Version 4)
Quarter: 2024Q4

REPORT INFORMATION
  Report Type: Spontaneous
  Country: US (occurrence: US)
  Receive Date: 20240710
  Receipt Date: 20241014
  Transmission Date: 20250115
  Serious: No
  Sender: PFIZER
  Company Number: US-PFIZER INC-202400207762

PATIENT
  Age: 7 Month
  Sex: Female
  Weight: 6.3 kg

DRUGS (2)
  1. GENOTROPIN [Suspect]
     Active Substance: SOMATROPIN
     Indication: Hypopituitarism
     Dosage: 0.1MG ONCE A DAY IN THE EVENING, BY INJECTION
     Dates: start: 202404
  2. HYDROCORTISONE [Concomitant]
     Active Substance: HYDROCORTISONE
     Indication: Hypopituitarism
     Dosage: EVERY 8 HOURS, VIA A G-TUBE (STARTED THE HYDROCORTISONE EARLY IN PATIENT^S LIFE)
     Dates: start: 202405

REACTIONS (3)
  - Drug dose omission by device [Unknown]
  - Device leakage [Unknown]
  - Device fastener issue [Unknown]

NARRATIVE: CASE EVENT DATE: 20240101
